FAERS Safety Report 13500733 (Version 2)
Quarter: 2017Q2

REPORT INFORMATION
  Report Type: Spontaneous
  Country: US (occurrence: US)
  Receive Date: 20170501
  Receipt Date: 20170614
  Transmission Date: 20170830
  Serious: No
  Sender: FDA-Public Use
  Company Number: US-ACTELION-A-US2017-151855

PATIENT
  Age: 61 Year
  Sex: Male
  Weight: 122.9 kg

DRUGS (7)
  1. UPTRAVI [Suspect]
     Active Substance: SELEXIPAG
     Dosage: 1000 MCG, BID
     Route: 048
  2. UPTRAVI [Suspect]
     Active Substance: SELEXIPAG
     Dosage: 800 UNK, UNK
     Route: 048
     Dates: end: 201705
  3. UPTRAVI [Suspect]
     Active Substance: SELEXIPAG
     Dosage: UNK
     Route: 048
  4. OPSUMIT [Concomitant]
     Active Substance: MACITENTAN
  5. UPTRAVI [Suspect]
     Active Substance: SELEXIPAG
     Dosage: 1200 MCG, BID
     Route: 048
  6. WARFARIN [Concomitant]
     Active Substance: WARFARIN
  7. UPTRAVI [Suspect]
     Active Substance: SELEXIPAG
     Indication: PULMONARY ARTERIAL HYPERTENSION
     Dosage: 1400 MCG, BID
     Route: 048

REACTIONS (7)
  - Neck pain [Unknown]
  - Irritability [Unknown]
  - Asthenia [Unknown]
  - Feeling abnormal [Unknown]
  - Joint swelling [Unknown]
  - Abdominal distension [Unknown]
  - Headache [Unknown]
